FAERS Safety Report 6812694-1 (Version None)
Quarter: 2010Q3

REPORT INFORMATION
  Report Type: 
  Country: None (occurrence: None)
  Receive Date: 20100701
  Receipt Date: 20100628
  Transmission Date: 20110219
  Serious: Yes (Life-Threatening)
  Sender: FDA-Public Use
  Company Number: FR-ROCHE-711767

PATIENT
  Sex: Female

DRUGS (6)
  1. ROCEPHIN [Suspect]
     Indication: URINARY TRACT INFECTION
     Route: 065
     Dates: start: 20100318, end: 20100326
  2. CARDENSIEL [Suspect]
     Indication: PRODUCT USED FOR UNKNOWN INDICATION
     Route: 065
     Dates: start: 20100310, end: 20100325
  3. LASIX [Suspect]
     Indication: PRODUCT USED FOR UNKNOWN INDICATION
     Route: 065
     Dates: start: 20100310, end: 20100325
  4. ACEBUTOLOL HYDROCHLORIDE [Concomitant]
     Dates: end: 20100310
  5. ACEBUTOLOL HYDROCHLORIDE [Concomitant]
     Dates: start: 20100325, end: 20100327
  6. BUMEX [Concomitant]
     Dates: start: 20100325, end: 20100326

REACTIONS (1)
  - DRUG RASH WITH EOSINOPHILIA AND SYSTEMIC SYMPTOMS [None]
